FAERS Safety Report 14731635 (Version 4)
Quarter: 2021Q2

REPORT INFORMATION
  Report Type: Spontaneous
  Country: US (occurrence: US)
  Receive Date: 20180407
  Receipt Date: 20210622
  Transmission Date: 20210716
  Serious: Yes (Death, Hospitalization, Other)
  Sender: FDA-Public Use
  Company Number: US-VIFOR (INTERNATIONAL) INC.-VIT-2018-03211

PATIENT
  Age: 69 Year
  Sex: Male
  Weight: 74.91 kg

DRUGS (22)
  1. CARVEDILOL. [Concomitant]
     Active Substance: CARVEDILOL
  2. EMLA [Concomitant]
     Active Substance: LIDOCAINE\PRILOCAINE
  3. FISH OIL [Concomitant]
     Active Substance: FISH OIL
  4. ONDANSETRON HYDROCHLORIDE. [Concomitant]
     Active Substance: ONDANSETRON HYDROCHLORIDE
  5. VELTASSA [Suspect]
     Active Substance: PATIROMER
     Route: 048
  6. VELPHORO [Suspect]
     Active Substance: SUCROFERRIC OXYHYDROXIDE
     Indication: HYPERKALAEMIA
     Route: 048
     Dates: start: 20180215
  7. FERROUS SULFATE. [Concomitant]
     Active Substance: FERROUS SULFATE
  8. GABAPENTIN. [Concomitant]
     Active Substance: GABAPENTIN
  9. PHOSLO [Concomitant]
     Active Substance: CALCIUM ACETATE
  10. VELTASSA [Suspect]
     Active Substance: PATIROMER
     Indication: HYPERKALAEMIA
     Route: 048
     Dates: start: 20180215
  11. ATORVASTATIN CALCIUM. [Concomitant]
     Active Substance: ATORVASTATIN CALCIUM
  12. SENSIPAR [Concomitant]
     Active Substance: CINACALCET HYDROCHLORIDE
  13. FUROSEMIDE. [Concomitant]
     Active Substance: FUROSEMIDE
  14. LIQUACEL [Concomitant]
  15. ESTAZOLAM. [Concomitant]
     Active Substance: ESTAZOLAM
  16. OMEPRAZOLE. [Concomitant]
     Active Substance: OMEPRAZOLE
  17. AMLODIPINE BESILATE [Concomitant]
     Active Substance: AMLODIPINE BESYLATE
  18. LACTULOSE. [Concomitant]
     Active Substance: LACTULOSE
  19. RESTORIL [Concomitant]
     Active Substance: TEMAZEPAM
  20. NITROGLYCERIN. [Concomitant]
     Active Substance: NITROGLYCERIN
  21. LACTOBACILLUS ACIDOPHILUS [Concomitant]
     Active Substance: LACTOBACILLUS ACIDOPHILUS
  22. ACETAMINOPHEN ER [Concomitant]
     Active Substance: ACETAMINOPHEN

REACTIONS (10)
  - Off label use [Unknown]
  - Heart rate irregular [Recovered/Resolved]
  - Death [Fatal]
  - Blood potassium decreased [Unknown]
  - Blood calcium decreased [Recovered/Resolved]
  - Pneumonia [Recovered/Resolved]
  - Atrial fibrillation [Recovered/Resolved]
  - Dyspnoea [Recovered/Resolved]
  - Pulmonary oedema [Recovered/Resolved]
  - Ventricular tachycardia [Recovered/Resolved]

NARRATIVE: CASE EVENT DATE: 2018
